FAERS Safety Report 22158280 (Version 2)
Quarter: 2024Q1

REPORT INFORMATION
  Report Type: Report from Study
  Country: US (occurrence: US)
  Receive Date: 20230331
  Receipt Date: 20240307
  Transmission Date: 20240410
  Serious: Yes (Hospitalization)
  Sender: FDA-Public Use
  Company Number: US-ACADIA PHARMACEUTICALS INC.-ACA-2023-PIM-001157

PATIENT
  Sex: Male

DRUGS (25)
  1. NUPLAZID [Suspect]
     Active Substance: PIMAVANSERIN TARTRATE
     Indication: Parkinson^s disease
     Dosage: 34 MILLIGRAM, QD
     Route: 048
     Dates: start: 202303
  2. NOURIANZ [Suspect]
     Active Substance: ISTRADEFYLLINE
  3. THERA-M [Concomitant]
  4. MIRALAX [Concomitant]
     Active Substance: POLYETHYLENE GLYCOL 3350
  5. ZESTRIL [Concomitant]
     Active Substance: LISINOPRIL
  6. VITAMIN D3 [Concomitant]
     Active Substance: CHOLECALCIFEROL
  7. VITAMIN C [Concomitant]
     Active Substance: ASCORBIC ACID
  8. CELECOXIB [Concomitant]
     Active Substance: CELECOXIB
  9. BENADRYL [Concomitant]
     Active Substance: DIPHENHYDRAMINE HYDROCHLORIDE
     Dosage: 25 MILLIGRAM
  10. GLYCOPYRROLATE [Concomitant]
     Active Substance: GLYCOPYRROLATE
  11. RYTARY [Concomitant]
     Active Substance: CARBIDOPA\LEVODOPA
  12. LACTULOSE [Concomitant]
     Active Substance: LACTULOSE
  13. ONDANSETRON [Concomitant]
     Active Substance: ONDANSETRON
  14. ROPINIROLE HYDROCHLORIDE [Concomitant]
     Active Substance: ROPINIROLE HYDROCHLORIDE
  15. LOTEPREDNOL ETABONATE [Concomitant]
     Active Substance: LOTEPREDNOL ETABONATE
  16. CEFUROXIME [Concomitant]
     Active Substance: CEFUROXIME
  17. NYSTATIN AND TRIAMCINOLONE [Concomitant]
     Active Substance: NYSTATIN\TRIAMCINOLONE ACETONIDE
  18. TRAMADOL HCL [Concomitant]
     Active Substance: TRAMADOL HYDROCHLORIDE
  19. BACLOFEN [Concomitant]
     Active Substance: BACLOFEN
  20. VITAMIN B COMPLEX WITH C [Concomitant]
     Active Substance: ASCORBIC ACID\CALCIUM PANTOTHENATE\CYANOCOBALAMIN\NIACINAMIDE\PYRIDOXINE HYDROCHLORIDE\RIBOFLAVIN\TH
  21. ATIVAN [Concomitant]
     Active Substance: LORAZEPAM
  22. DONEPEZIL HYDROCHLORIDE [Concomitant]
     Active Substance: DONEPEZIL HYDROCHLORIDE
  23. NORVASC [Concomitant]
     Active Substance: AMLODIPINE BESYLATE
  24. NYSTATIN [Concomitant]
     Active Substance: NYSTATIN
  25. VITAMIN B [Concomitant]
     Active Substance: VITAMIN B

REACTIONS (4)
  - Fatigue [Unknown]
  - Fall [Unknown]
  - COVID-19 [Unknown]
  - Dizziness [Unknown]
